FAERS Safety Report 10545238 (Version 1)
Quarter: 2014Q4

REPORT INFORMATION
  Report Type: Spontaneous
  Country: US (occurrence: US)
  Receive Date: 20141027
  Receipt Date: 20141027
  Transmission Date: 20150529
  Serious: Yes (Hospitalization, Other)
  Sender: FDA-Public Use
  Company Number: US-PFIZER INC-2014294790

PATIENT
  Age: 64 Year
  Sex: Female

DRUGS (1)
  1. TOFACITINIB [Suspect]
     Active Substance: TOFACITINIB
     Indication: RHEUMATOID ARTHRITIS
     Dosage: UNK

REACTIONS (4)
  - Septic shock [Unknown]
  - Escherichia urinary tract infection [Unknown]
  - Sepsis [Recovered/Resolved with Sequelae]
  - Purpura fulminans [Recovered/Resolved with Sequelae]
